FAERS Safety Report 6384331-4 (Version None)
Quarter: 2009Q4

REPORT INFORMATION
  Report Type: 
  Country: None (occurrence: None)
  Receive Date: 20091001
  Receipt Date: 20090929
  Transmission Date: 20100525
  Serious: Yes (Other)
  Sender: FDA-Public Use
  Company Number: US-BRISTOL-MYERS SQUIBB COMPANY-14791669

PATIENT
  Age: 44 Year
  Sex: Female
  Weight: 113 kg

DRUGS (3)
  1. ABILIFY [Suspect]
     Indication: MAJOR DEPRESSION
     Dosage: INITIAL DOSE:2MG T AM AND TT HS) INCREASED TO 5MG(04AUG09)BID
     Route: 048
     Dates: start: 20090727, end: 20090801
  2. ABILIFY [Suspect]
     Indication: MOOD SWINGS
     Dosage: INITIAL DOSE:2MG T AM AND TT HS) INCREASED TO 5MG(04AUG09)BID
     Route: 048
     Dates: start: 20090727, end: 20090801
  3. LEXAPRO [Suspect]

REACTIONS (7)
  - FATIGUE [None]
  - GAIT DISTURBANCE [None]
  - HEPATIC PAIN [None]
  - HEPATOMEGALY [None]
  - MOOD SWINGS [None]
  - MUSCLE ATROPHY [None]
  - RESTLESSNESS [None]
